FAERS Safety Report 4337498-3 (Version None)
Quarter: 2004Q2

REPORT INFORMATION
  Report Type: 
  Country: None (occurrence: None)
  Receive Date: 20040408
  Receipt Date: 20040331
  Transmission Date: 20050107
  Serious: Yes (Hospitalization)
  Sender: FDA-Public Use
  Company Number: 2004207315FR

PATIENT
  Age: 33 Year
  Sex: Male

DRUGS (4)
  1. XANAX [Suspect]
     Dosage: ORAL
     Route: 048
     Dates: start: 20040210, end: 20040213
  2. CLOZAPINE [Suspect]
     Dosage: 600 MG/DAY, ORAL
     Route: 048
     Dates: start: 20030815
  3. SEROPRAM (CITALOPRAM HYDROBROMIDE) [Concomitant]
  4. IMOVANE [Concomitant]

REACTIONS (5)
  - CONVULSIVE THRESHOLD LOWERED [None]
  - DEPRESSED LEVEL OF CONSCIOUSNESS [None]
  - DRUG WITHDRAWAL CONVULSIONS [None]
  - STRESS SYMPTOMS [None]
  - TRISMUS [None]
